FAERS Safety Report 17756229 (Version 1)
Quarter: 2020Q2

REPORT INFORMATION
  Report Type: Spontaneous
  Country: US (occurrence: US)
  Receive Date: 20200507
  Receipt Date: 20200507
  Transmission Date: 20200714
  Serious: No
  Sender: FDA-Public Use
  Company Number: None

PATIENT
  Age: 71 Year
  Sex: Male

DRUGS (3)
  1. ASPIRIN (ASPIRIN 81MG TAB) [Suspect]
     Active Substance: ASPIRIN
     Route: 048
     Dates: start: 20200408
  2. APIXABAN (APIXABAN) 2.5MG TAB) [Suspect]
     Active Substance: APIXABAN
     Indication: DEEP VEIN THROMBOSIS
     Route: 048
     Dates: start: 20200408, end: 20200429
  3. APIXABAN (APIXABAN) 2.5MG TAB) [Suspect]
     Active Substance: APIXABAN
     Indication: THROMBOSIS PROPHYLAXIS
     Route: 048
     Dates: start: 20200408, end: 20200429

REACTIONS (2)
  - Anaemia [None]
  - Melaena [None]

NARRATIVE: CASE EVENT DATE: 20200428
